FAERS Safety Report 15667413 (Version 2)
Quarter: 2019Q1

REPORT INFORMATION
  Report Type: Spontaneous
  Country: FR (occurrence: FR)
  Receive Date: 20181128
  Receipt Date: 20190129
  Transmission Date: 20190417
  Serious: Yes (Hospitalization)
  Sender: FDA-Public Use
  Company Number: FR-INDIVIOR LIMITED-INDV-115947-2018

PATIENT
  Age: 31 Year
  Sex: Male

DRUGS (4)
  1. LOXAPAC                            /00401801/ [Suspect]
     Active Substance: LOXAPINE
     Indication: PSYCHOTIC DISORDER
     Dosage: 150 MG, PER DAY
     Route: 030
     Dates: start: 201710
  2. BUPRENORPHINE. [Suspect]
     Active Substance: BUPRENORPHINE
     Indication: DRUG DEPENDENCE
     Dosage: 1.2 MG, PER DAY
     Route: 048
     Dates: start: 2016
  3. TERCIAN                            /00759301/ [Suspect]
     Active Substance: CYAMEMAZINE
     Indication: PSYCHOTIC DISORDER
     Dosage: 600 MG, PER DAY
     Route: 048
     Dates: start: 201710
  4. XEPLION [Suspect]
     Active Substance: PALIPERIDONE PALMITATE
     Indication: PSYCHOTIC DISORDER
     Dosage: 100 MG, ONCE PER 30 DAYS
     Route: 030
     Dates: start: 201712

REACTIONS (2)
  - Constipation [Not Recovered/Not Resolved]
  - Intestinal obstruction [Not Recovered/Not Resolved]

NARRATIVE: CASE EVENT DATE: 201806
